FAERS Safety Report 7904675-1 (Version None)
Quarter: 2011Q4

REPORT INFORMATION
  Report Type: 
  Country: None (occurrence: None)
  Receive Date: 20111109
  Receipt Date: 20110907
  Transmission Date: 20120403
  Serious: Yes (Hospitalization)
  Sender: FDA-Public Use
  Company Number: JP-GLAXOSMITHKLINE-B0746073A

PATIENT
  Age: 62 Year
  Sex: Female

DRUGS (6)
  1. ZYPREXA [Concomitant]
     Indication: BIPOLAR DISORDER
     Dosage: 7.5MG PER DAY
     Route: 048
  2. LAMICTAL [Suspect]
     Indication: BIPOLAR DISORDER
     Dosage: 25MG PER DAY
     Route: 048
     Dates: start: 20110823, end: 20110901
  3. OMEPRAZOLE [Concomitant]
     Dosage: 10MG PER DAY
     Route: 048
  4. PAXIL [Concomitant]
     Indication: DEPRESSION
     Dosage: 20MG PER DAY
     Route: 048
     Dates: start: 20110812
  5. NITRAZEPAM [Concomitant]
     Indication: BIPOLAR DISORDER
     Dosage: 5MG PER DAY
     Route: 048
  6. GASMOTIN [Concomitant]
     Dosage: 45MG PER DAY
     Route: 048

REACTIONS (5)
  - DRUG RASH WITH EOSINOPHILIA AND SYSTEMIC SYMPTOMS [None]
  - ERYTHEMA [None]
  - SWELLING FACE [None]
  - PYREXIA [None]
  - RASH [None]
